FAERS Safety Report 19174531 (Version 1)
Quarter: 2021Q2

REPORT INFORMATION
  Report Type: Spontaneous
  Country: US (occurrence: US)
  Receive Date: 20210423
  Receipt Date: 20210423
  Transmission Date: 20210717
  Serious: Yes (Other)
  Sender: FDA-Public Use
  Company Number: US-TEVA-2021-US-1903807

PATIENT
  Sex: Male

DRUGS (1)
  1. ALBUTEROL SULFATE HFA [Suspect]
     Active Substance: ALBUTEROL SULFATE
     Dosage: FORM OF ADMIN: INHALATION ? AEROSOL
     Route: 065

REACTIONS (4)
  - Adverse event [Unknown]
  - Device defective [Unknown]
  - Device delivery system issue [Unknown]
  - Near death experience [Unknown]
